FAERS Safety Report 24155977 (Version 1)
Quarter: 2024Q3

REPORT INFORMATION
  Report Type: Spontaneous
  Country: UA (occurrence: UA)
  Receive Date: 20240731
  Receipt Date: 20240731
  Transmission Date: 20241017
  Serious: Yes (Hospitalization)
  Sender: TEVA
  Company Number: UA-TEVA-VS-3213772

PATIENT
  Age: 12 Year
  Sex: Male
  Weight: 55 kg

DRUGS (1)
  1. MONTELUKAST [Suspect]
     Active Substance: MONTELUKAST SODIUM
     Indication: Asthma
     Dosage: IN THE EVENING
     Route: 065

REACTIONS (3)
  - Obstruction [Unknown]
  - Headache [Unknown]
  - Nausea [Unknown]
